FAERS Safety Report 7329928-X (Version None)
Quarter: 2011Q1

REPORT INFORMATION
  Report Type: 
  Country: None (occurrence: None)
  Receive Date: 20110303
  Receipt Date: 20110218
  Transmission Date: 20110831
  Serious: Yes (Hospitalization)
  Sender: FDA-Public Use
  Company Number: FR-MYLANLABS-2011S1003522

PATIENT
  Age: 67 Year
  Sex: Male

DRUGS (1)
  1. PACLITAXEL [Suspect]
     Indication: METASTASES TO LIVER
     Route: 065

REACTIONS (3)
  - PNEUMATOSIS INTESTINALIS [None]
  - PANCYTOPENIA [None]
  - PNEUMOPERITONEUM [None]
